FAERS Safety Report 4450815-9 (Version None)
Quarter: 2004Q3

REPORT INFORMATION
  Report Type: 
  Country: None (occurrence: None)
  Receive Date: 20040916
  Receipt Date: 20011002
  Transmission Date: 20050211
  Serious: Yes (Other)
  Sender: FDA-Public Use
  Company Number: US-BRISTOL-MYERS SQUIBB COMPANY-11029337

PATIENT
  Age: 35 Year
  Sex: Male

DRUGS (2)
  1. STADOL [Suspect]
     Indication: ARTHRALGIA
     Route: 042
     Dates: start: 19930923
  2. NUBAIN [Concomitant]
     Indication: ARTHRALGIA
     Route: 042
     Dates: start: 19940101

REACTIONS (2)
  - DEPENDENCE [None]
  - DRUG WITHDRAWAL SYNDROME [None]
